FAERS Safety Report 18477093 (Version 2)
Quarter: 2021Q1

REPORT INFORMATION
  Report Type: Spontaneous
  Country: US (occurrence: US)
  Receive Date: 20201107
  Receipt Date: 20210106
  Transmission Date: 20210419
  Serious: Yes (Life-Threatening, Hospitalization)
  Sender: FDA-Public Use
  Company Number: US-TEVA-2020-US-1843997

PATIENT
  Age: 62 Year
  Sex: Female

DRUGS (3)
  1. TRAZODONE [Suspect]
     Active Substance: TRAZODONE HYDROCHLORIDE
     Indication: ANXIETY
     Dosage: SHE TOOK TRAZODONE DAILY
     Route: 065
  2. BUPROPION. [Suspect]
     Active Substance: BUPROPION
     Indication: ANXIETY
     Dosage: SHE TOOK BUPROPION DAILY
     Route: 065
  3. TRAMADOL. [Suspect]
     Active Substance: TRAMADOL
     Indication: BACK PAIN
     Dosage: TRAMADOL WAS RECENTLY ADDED
     Route: 065

REACTIONS (2)
  - Serotonin syndrome [Recovering/Resolving]
  - Shock [Recovering/Resolving]
